FAERS Safety Report 20080385 (Version 1)
Quarter: 2021Q4

REPORT INFORMATION
  Report Type: Report from Study
  Country: US (occurrence: US)
  Receive Date: 20211117
  Receipt Date: 20211117
  Transmission Date: 20220303
  Serious: Yes (Life-Threatening, Hospitalization, Other)
  Sender: FDA-Public Use
  Company Number: US-BRISTOL-MYERS SQUIBB COMPANY-BMS-2021-102029

PATIENT
  Age: 73 Year
  Sex: Male
  Weight: 67.7 kg

DRUGS (2)
  1. NIVOLUMAB [Suspect]
     Active Substance: NIVOLUMAB
     Indication: Renal cell carcinoma
     Dosage: 197.4 MILLIGRAM
     Route: 065
     Dates: start: 20210909, end: 20211021
  2. IPILIMUMAB [Suspect]
     Active Substance: IPILIMUMAB
     Indication: Renal cell carcinoma
     Dosage: 65.8 MILLIGRAM
     Route: 065
     Dates: start: 20210909, end: 20211021

REACTIONS (2)
  - Colitis [Not Recovered/Not Resolved]
  - Diverticulitis intestinal perforated [Unknown]

NARRATIVE: CASE EVENT DATE: 20210911
